FAERS Safety Report 5600384-2 (Version None)
Quarter: 2008Q1

REPORT INFORMATION
  Report Type: 
  Country: None (occurrence: None)
  Receive Date: 20080118
  Receipt Date: 20080110
  Transmission Date: 20080703
  Serious: Yes (Hospitalization, Other)
  Sender: FDA-Public Use
  Company Number: 2006-01964

PATIENT
  Age: 59 Year
  Sex: Male
  Weight: 97.5 kg

DRUGS (9)
  1. VELCADE [Suspect]
     Indication: SQUAMOUS CELL CARCINOMA
     Dosage: 1.30 MG/M2, IV BOLUS
     Route: 040
     Dates: start: 20060724, end: 20060724
  2. IRINOTECAN HCL [Suspect]
     Indication: SQUAMOUS CELL CARCINOMA
     Dosage: 125.00 MG/M2, INTRAVENOUS
     Route: 042
     Dates: start: 20060724, end: 20060724
  3. ATIVAN [Concomitant]
  4. METOPROLOL TARTRATE [Concomitant]
  5. MORPHINE [Concomitant]
  6. MULTIVITAMINS (ERGOCALCIFEROL, PANTHENOL, NICOTINAMIDE, RIBOFLAVIN, TH [Concomitant]
  7. SIMETHICONE (SIMETICONE) [Concomitant]
  8. IMODIUM (LOPERAMIDE HYDROCHORIDE) [Concomitant]
  9. ONCOLOGY MOUTH WASH [Concomitant]

REACTIONS (4)
  - DIZZINESS [None]
  - HYPOPHOSPHATAEMIA [None]
  - SMALL INTESTINAL OBSTRUCTION [None]
  - WHITE BLOOD CELL COUNT DECREASED [None]
